FAERS Safety Report 7778544-4 (Version None)
Quarter: 2011Q3

REPORT INFORMATION
  Report Type: 
  Country: None (occurrence: None)
  Receive Date: 20110922
  Receipt Date: 20110906
  Transmission Date: 20111222
  Serious: Yes (Other)
  Sender: FDA-Public Use
  Company Number: AUR-APL-2011-04996

PATIENT
  Age: 55 Year
  Sex: Male

DRUGS (1)
  1. SIMVASTATIN [Suspect]
     Indication: PRODUCT USED FOR UNKNOWN INDICATION
     Dosage: (40 MG) ; (20 MG)

REACTIONS (6)
  - CARPAL TUNNEL SYNDROME [None]
  - NERVE COMPRESSION [None]
  - MYALGIA [None]
  - PERIARTHRITIS [None]
  - CONFUSIONAL STATE [None]
  - FEELING ABNORMAL [None]
